FAERS Safety Report 4865141-3 (Version None)
Quarter: 2005Q4

REPORT INFORMATION
  Report Type: 
  Country: None (occurrence: None)
  Receive Date: 20051223
  Receipt Date: 20051102
  Transmission Date: 20060501
  Serious: Yes (Hospitalization)
  Sender: FDA-Public Use
  Company Number: US-BRISTOL-MYERS SQUIBB COMPANY-13166061

PATIENT
  Age: 80 Year
  Sex: Male
  Weight: 63 kg

DRUGS (3)
  1. CETUXIMAB [Suspect]
     Indication: COLON CANCER
     Dosage: ON HOLD 01-NOV-05.
     Route: 042
     Dates: start: 20051024, end: 20051024
  2. IRINOTECAN [Suspect]
     Indication: COLON CANCER
     Route: 042
     Dates: start: 20051024, end: 20051024
  3. CAPECITABINE [Suspect]
     Indication: COLON CANCER
     Dosage: ON HOLD 01-NOV-05.
     Route: 048
     Dates: start: 20051026, end: 20051026

REACTIONS (2)
  - ATRIAL FIBRILLATION [None]
  - DEHYDRATION [None]
